FAERS Safety Report 7030002-0 (Version None)
Quarter: 2010Q4

REPORT INFORMATION
  Report Type: 
  Country: None (occurrence: None)
  Receive Date: 20101006
  Receipt Date: 20100927
  Transmission Date: 20110411
  Serious: Yes (Other)
  Sender: FDA-Public Use
  Company Number: CN-JNJFOC-20101000442

PATIENT
  Age: 35 Year
  Sex: Female
  Weight: 80 kg

DRUGS (1)
  1. RISPERDAL [Suspect]
     Indication: SCHIZOPHRENIA
     Route: 048

REACTIONS (4)
  - GASTRIC ULCER [None]
  - HEPATIC STEATOSIS [None]
  - TREMOR [None]
  - WEIGHT INCREASED [None]
